FAERS Safety Report 4488924-0 (Version None)
Quarter: 2004Q4

REPORT INFORMATION
  Report Type: 
  Country: None (occurrence: None)
  Receive Date: 20041029
  Receipt Date: 20041021
  Transmission Date: 20050328
  Serious: Yes (Other)
  Sender: FDA-Public Use
  Company Number: AU-ABBOTT-04P-008-0278286-00

PATIENT
  Sex: Male

DRUGS (1)
  1. EPILIM SYRUP [Suspect]
     Indication: DRUG USE FOR UNKNOWN INDICATION

REACTIONS (7)
  - COORDINATION ABNORMAL [None]
  - DYSGRAPHIA [None]
  - GAIT DISTURBANCE [None]
  - LEARNING DISORDER [None]
  - LETHARGY [None]
  - NAUSEA [None]
  - VOMITING [None]
